FAERS Safety Report 14138496 (Version 1)
Quarter: 2017Q4

REPORT INFORMATION
  Report Type: Spontaneous
  Country: US (occurrence: US)
  Receive Date: 20171027
  Receipt Date: 20171027
  Transmission Date: 20180321
  Serious: No
  Sender: FDA-Public Use
  Company Number: US-ROCHE-1911149

PATIENT
  Age: 7 Year
  Sex: Male
  Weight: 24.52 kg

DRUGS (1)
  1. TAMIFLU [Suspect]
     Active Substance: OSELTAMIVIR PHOSPHATE
     Indication: PRODUCT USED FOR UNKNOWN INDICATION
     Dosage: TOOK A 10ML DOSE IN 2.5ML INCREMENTS WITH FOOD
     Route: 048

REACTIONS (1)
  - Vomiting [Unknown]
